FAERS Safety Report 10018544 (Version 2)
Quarter: 2014Q2

REPORT INFORMATION
  Report Type: Report from Study
  Country: TW (occurrence: TW)
  Receive Date: 20140318
  Receipt Date: 20140515
  Transmission Date: 20141212
  Serious: Yes (Hospitalization)
  Sender: FDA-Public Use
  Company Number: TW-ELI_LILLY_AND_COMPANY-TW201403002038

PATIENT
  Age: 66 Year
  Sex: Female

DRUGS (4)
  1. NECITUMUMAB (11F8) (LY3012211) [Suspect]
     Indication: NON-SMALL CELL LUNG CANCER
     Dosage: 800 MG, DAY ONE AND 8 OF EVERY 3 WEEK CYCLE
     Route: 042
     Dates: start: 20131204
  2. GEMCITABINE HYDROCHLORIDE [Suspect]
     Indication: NON-SMALL CELL LUNG CANCER
     Dosage: 1250 MG/M2, DAYS 1 AND 8 OF EVERY 3 WEEK CYCLE
     Route: 042
     Dates: start: 20131204
  3. CISPLATIN [Suspect]
     Indication: NON-SMALL CELL LUNG CANCER
     Dosage: 75 MG/M2, DAY ONE OF EVERY THREE WEEK CYCLE
     Route: 042
     Dates: start: 20131204
  4. NORVASC [Concomitant]
     Indication: HYPERTENSION
     Dosage: UNK
     Dates: start: 2010

REACTIONS (1)
  - Ischaemic stroke [Recovered/Resolved]
